FAERS Safety Report 8547983-6 (Version None)
Quarter: 2012Q3

REPORT INFORMATION
  Report Type: 
  Country: None (occurrence: None)
  Receive Date: 20120729
  Receipt Date: 20120717
  Transmission Date: 20120928
  Serious: Yes (Death, Hospitalization, Other)
  Sender: FDA-Public Use
  Company Number: US-MSD-1201USA02283

PATIENT

DRUGS (4)
  1. FOSAMAX [Suspect]
     Dosage: 10 MG, UNK
     Route: 048
     Dates: start: 20000201, end: 20021001
  2. FOSAMAX [Suspect]
     Dosage: 70 MG, UNK
     Route: 048
     Dates: start: 20021101, end: 20080201
  3. FOSAMAX [Suspect]
     Dosage: 70 MG, UNK
     Route: 048
     Dates: start: 20080201, end: 20101103
  4. FOSAMAX [Suspect]
     Indication: OSTEOPENIA
     Dosage: 5 MG, UNK
     Route: 048
     Dates: start: 19990801, end: 20000101

REACTIONS (19)
  - CARDIO-RESPIRATORY ARREST [None]
  - LOW TURNOVER OSTEOPATHY [None]
  - PHOTOPSIA [None]
  - CONFUSIONAL STATE [None]
  - TOOTH EXTRACTION [None]
  - DEPRESSION [None]
  - WRIST FRACTURE [None]
  - GINGIVAL BLEEDING [None]
  - VASCULAR DEMENTIA [None]
  - FEMUR FRACTURE [None]
  - BLOOD CHOLESTEROL INCREASED [None]
  - DENTAL CARIES [None]
  - ANXIETY [None]
  - CEREBROVASCULAR ACCIDENT [None]
  - OSTEONECROSIS OF JAW [None]
  - ORAL TORUS [None]
  - ARTHROPOD BITE [None]
  - ALTERED STATE OF CONSCIOUSNESS [None]
  - DEHYDRATION [None]
